FAERS Safety Report 7531675-6 (Version None)
Quarter: 2011Q2

REPORT INFORMATION
  Report Type: 
  Country: None (occurrence: None)
  Receive Date: 20110608
  Receipt Date: 20110524
  Transmission Date: 20111010
  Serious: No
  Sender: FDA-Public Use
  Company Number: US-B.I. PHARMACEUTICALS,INC./RIDGEFIELD-2011-BP-13893BP

PATIENT
  Age: 85 Year
  Sex: Male

DRUGS (2)
  1. PRILOSEC [Concomitant]
     Route: 048
  2. PRADAXA [Suspect]
     Dosage: 150 MG
     Route: 048

REACTIONS (1)
  - OESOPHAGEAL PAIN [None]
